FAERS Safety Report 7411868-9 (Version None)
Quarter: 2011Q2

REPORT INFORMATION
  Report Type: 
  Country: None (occurrence: None)
  Receive Date: 20110408
  Receipt Date: 20110408
  Transmission Date: 20111010
  Serious: Yes (Life-Threatening, Hospitalization, Disabling, Other)
  Sender: FDA-Public Use
  Company Number: None

PATIENT
  Age: 63 Year
  Sex: Male

DRUGS (3)
  1. FLUDARABINE PHOSPHATE [Suspect]
     Dates: start: 20090527
  2. CYCLOPHOSPHAMIDE [Suspect]
  3. RITUXIMAB [Suspect]

REACTIONS (2)
  - BONE MARROW FAILURE [None]
  - ANAEMIA [None]
